FAERS Safety Report 5389897-9 (Version None)
Quarter: 2007Q3

REPORT INFORMATION
  Report Type: 
  Country: None (occurrence: None)
  Receive Date: 20070716
  Receipt Date: 20070716
  Transmission Date: 20080115
  Serious: Yes (Hospitalization)
  Sender: FDA-Public Use
  Company Number: None

PATIENT
  Sex: Female
  Weight: 62.1428 kg

DRUGS (11)
  1. GEMCITABINE HCL [Suspect]
     Indication: MESOTHELIOMA
     Dosage: 1000MG/M2 EVERY OTHER WEEK IV
     Route: 042
     Dates: start: 20070702, end: 20070702
  2. OXALIPLATIN [Suspect]
     Indication: MESOTHELIOMA
     Dosage: 100MG/M2 EVERY OTHER WEEK IV
     Route: 042
     Dates: start: 20070702, end: 20070702
  3. TOPROL-XL [Concomitant]
  4. ESTRADIOL [Concomitant]
  5. LIPITOR [Concomitant]
  6. ALTACE [Concomitant]
  7. PLAVIX [Concomitant]
  8. IMDUR [Concomitant]
  9. ZETIA [Concomitant]
  10. PRILOSEC [Concomitant]
  11. AMBIEN CR [Concomitant]

REACTIONS (1)
  - SMALL INTESTINAL OBSTRUCTION [None]
